FAERS Safety Report 5286595-7 (Version None)
Quarter: 2007Q2

REPORT INFORMATION
  Report Type: 
  Country: None (occurrence: None)
  Receive Date: 20070404
  Receipt Date: 20070329
  Transmission Date: 20071010
  Serious: Yes (Hospitalization)
  Sender: FDA-Public Use
  Company Number: US-GLAXOSMITHKLINE-A0639292A

PATIENT
  Age: 58 Year
  Sex: Female

DRUGS (2)
  1. TOPOTECAN HYDROCHLORIDE [Suspect]
     Indication: OVARIAN CANCER
     Route: 042
     Dates: start: 20061127
  2. ERLOTINIB [Suspect]
     Indication: OVARIAN CANCER
     Route: 048
     Dates: start: 20061127

REACTIONS (4)
  - ANAEMIA [None]
  - DEHYDRATION [None]
  - NAUSEA [None]
  - VOMITING [None]
